FAERS Safety Report 4350738-X (Version None)
Quarter: 2004Q2

REPORT INFORMATION
  Report Type: 
  Country: None (occurrence: None)
  Receive Date: 20040427
  Receipt Date: 20040311
  Transmission Date: 20050107
  Serious: Yes (Disabling)
  Sender: FDA-Public Use
  Company Number: 2004-BP-00939AU

PATIENT
  Age: 55 Year
  Sex: Male

DRUGS (3)
  1. MICARDIS [Suspect]
     Indication: HYPERTENSION
     Dosage: 80 MG (80 MG, 1 DAILY), PO
     Route: 048
     Dates: start: 20000801, end: 20040119
  2. TELFAST (TA) [Suspect]
     Indication: SINUS DISORDER
     Dosage: 60 MG (60 MG), PO
     Route: 048
     Dates: start: 20000101, end: 20040119
  3. DAPATAB(TA) [Concomitant]

REACTIONS (7)
  - ATAXIA [None]
  - DIFFICULTY IN WALKING [None]
  - DIZZINESS [None]
  - HYPERHIDROSIS [None]
  - INSOMNIA [None]
  - MUSCLE CONTRACTIONS INVOLUNTARY [None]
  - TREMOR [None]
